FAERS Safety Report 25757456 (Version 5)
Quarter: 2025Q4

REPORT INFORMATION
  Report Type: Spontaneous
  Country: US (occurrence: None)
  Receive Date: 20250903
  Receipt Date: 20251023
  Transmission Date: 20260117
  Serious: Yes (Life-Threatening, Hospitalization, Other)
  Sender: ALKERMES
  Company Number: US-ALKERMES INC.-ALK-2025-002270

PATIENT
  Sex: Female
  Weight: 113.38 kg

DRUGS (7)
  1. LYBALVI [Suspect]
     Active Substance: OLANZAPINE\SAMIDORPHAN L-MALATE
     Indication: Schizophrenia
     Dosage: 5/10 MILLIGRAM, QD
  2. LYBALVI [Suspect]
     Active Substance: OLANZAPINE\SAMIDORPHAN L-MALATE
     Indication: Bipolar disorder
  3. DEPAKOTE [Concomitant]
     Active Substance: DIVALPROEX SODIUM
     Indication: Product used for unknown indication
     Dosage: UNK
     Route: 065
  4. BENADRYL [Concomitant]
     Active Substance: DIPHENHYDRAMINE HYDROCHLORIDE
     Indication: Sleep disorder
     Dosage: UNK
     Route: 065
  5. MELATONIN [Concomitant]
     Active Substance: MELATONIN
     Indication: Product used for unknown indication
     Dosage: UNK
     Route: 065
  6. SEROQUEL [Concomitant]
     Active Substance: QUETIAPINE FUMARATE
     Indication: Product used for unknown indication
     Dosage: UNK
     Route: 065
  7. Pimdlol [Concomitant]
     Indication: Product used for unknown indication
     Dosage: UNK
     Route: 065

REACTIONS (31)
  - Sepsis [Unknown]
  - Coma [Not Recovered/Not Resolved]
  - Catatonia [Not Recovered/Not Resolved]
  - Neuroleptic malignant syndrome [Not Recovered/Not Resolved]
  - Acute kidney injury [Unknown]
  - Delirium [Unknown]
  - Rhabdomyolysis [Unknown]
  - Urinary retention [Unknown]
  - Urinary tract infection [Unknown]
  - Dysphagia [Unknown]
  - Hyperpyrexia [Unknown]
  - Dyspnoea [Unknown]
  - Hypoxia [Unknown]
  - Emotional distress [Unknown]
  - Hallucination [Unknown]
  - White blood cell count increased [Unknown]
  - Fibrin D dimer increased [Unknown]
  - Troponin increased [Unknown]
  - Blood phosphorus increased [Unknown]
  - Blood thyroid stimulating hormone increased [Unknown]
  - Autonomic nervous system imbalance [Unknown]
  - Hyperhidrosis [Unknown]
  - Heart rate irregular [Unknown]
  - Blood pressure abnormal [Unknown]
  - Muscle rigidity [Unknown]
  - Constipation [Unknown]
  - Blood creatine phosphokinase increased [Recovering/Resolving]
  - Rash [Unknown]
  - Blood glucose increased [Unknown]
  - Motor dysfunction [Not Recovered/Not Resolved]
  - Musculoskeletal stiffness [Unknown]

NARRATIVE: CASE EVENT DATE: 20250101
